FAERS Safety Report 14211644 (Version 1)
Quarter: 2017Q4

REPORT INFORMATION
  Report Type: Spontaneous
  Country: US (occurrence: US)
  Receive Date: 20171122
  Receipt Date: 20171122
  Transmission Date: 20180321
  Serious: No
  Sender: FDA-Public Use
  Company Number: US-TEVA-812667ACC

PATIENT
  Age: 14 Year
  Sex: Female

DRUGS (2)
  1. DEXMETHYLPHENIDATE HYDROCHLORIDE. [Suspect]
     Active Substance: DEXMETHYLPHENIDATE HYDROCHLORIDE
  2. NORETHINDRONE. [Concomitant]
     Active Substance: NORETHINDRONE
     Indication: MENSTRUAL CYCLE MANAGEMENT

REACTIONS (4)
  - Somnolence [Unknown]
  - Erythema [Unknown]
  - Feeling abnormal [Unknown]
  - Abdominal discomfort [Unknown]
